FAERS Safety Report 21043402 (Version 1)
Quarter: 2022Q3

REPORT INFORMATION
  Report Type: Spontaneous
  Country: CA (occurrence: CA)
  Receive Date: 20220705
  Receipt Date: 20220705
  Transmission Date: 20221026
  Serious: Yes (Death)
  Sender: FDA-Public Use
  Company Number: CA-PFIZER INC-202200174902

PATIENT
  Age: 66 Year
  Sex: Female

DRUGS (1)
  1. RAPAMUNE [Suspect]
     Active Substance: SIROLIMUS
     Dosage: 1 MG ALTERNATING WITH 2 MG EVERY OTHER DAY

REACTIONS (3)
  - Death [Fatal]
  - Off label use [Unknown]
  - Nausea [Unknown]
